FAERS Safety Report 4783492-8 (Version None)
Quarter: 2005Q3

REPORT INFORMATION
  Report Type: 
  Country: None (occurrence: None)
  Receive Date: 20050914
  Receipt Date: 20040909
  Transmission Date: 20060218
  Serious: Yes (Life-Threatening, Hospitalization, Disabling)
  Sender: FDA-Public Use
  Company Number: 163-20785-04040594

PATIENT
  Age: 48 Year
  Sex: Female

DRUGS (4)
  1. THALOMID [Suspect]
     Indication: MULTIPLE MYELOMA
     Dosage: 200 MG, DAILY, ORAL; 100 MG, DAILY, ORAL; 300 MG, DAILY, ORAL
     Route: 048
     Dates: start: 20031028, end: 20031110
  2. THALOMID [Suspect]
     Indication: MULTIPLE MYELOMA
     Dosage: 200 MG, DAILY, ORAL; 100 MG, DAILY, ORAL; 300 MG, DAILY, ORAL
     Route: 048
     Dates: start: 20031111, end: 20031124
  3. THALOMID [Suspect]
     Indication: MULTIPLE MYELOMA
     Dosage: 200 MG, DAILY, ORAL; 100 MG, DAILY, ORAL; 300 MG, DAILY, ORAL
     Route: 048
     Dates: start: 20031111, end: 20031124
  4. DECADRON [Concomitant]

REACTIONS (4)
  - ERYTHEMA NODOSUM [None]
  - FEBRILE NEUTROPENIA [None]
  - STAPHYLOCOCCAL INFECTION [None]
  - WALKING DISABILITY [None]
